FAERS Safety Report 9683990 (Version 2)
Quarter: 2014Q1

REPORT INFORMATION
  Report Type: Spontaneous
  Country: AU (occurrence: AU)
  Receive Date: 20131112
  Receipt Date: 20140127
  Transmission Date: 20141002
  Serious: Yes (Death, Other)
  Sender: FDA-Public Use
  Company Number: AU-ROCHE-1302260

PATIENT
  Age: 77 Year
  Sex: 0

DRUGS (1)
  1. ACTILYSE [Suspect]
     Indication: CEREBRAL INFARCTION
     Route: 065
     Dates: start: 20110410

REACTIONS (2)
  - Death [Fatal]
  - Haemorrhagic transformation stroke [Unknown]
